FAERS Safety Report 18655904 (Version 3)
Quarter: 2024Q1

REPORT INFORMATION
  Report Type: Spontaneous
  Country: MX (occurrence: MX)
  Receive Date: 20201223
  Receipt Date: 20240329
  Transmission Date: 20240409
  Serious: Yes (Hospitalization, Other)
  Sender: FDA-Public Use
  Company Number: MX-MLMSERVICE-20201209-2619036-1

PATIENT
  Age: 13 Year
  Sex: Female

DRUGS (4)
  1. CYTARABINE [Suspect]
     Active Substance: CYTARABINE
     Indication: Acute myeloid leukaemia
     Dosage: 200 MG/M2, CYCLIC (DAYS 1-4)
     Route: 042
     Dates: start: 20190112
  2. DOXORUBICIN HYDROCHLORIDE [Suspect]
     Active Substance: DOXORUBICIN HYDROCHLORIDE
     Indication: Acute myeloid leukaemia
     Dosage: 75 MG/M2, CYCLIC (ON DAY 5)
     Dates: start: 20190112
  3. ETOPOSIDE [Suspect]
     Active Substance: ETOPOSIDE
     Indication: Acute myeloid leukaemia
     Dosage: 100 MG/M2, CYCLIC (DAYS 1-4)
     Route: 042
     Dates: start: 20190112
  4. MERCAPTOPURINE [Suspect]
     Active Substance: MERCAPTOPURINE
     Indication: Acute myeloid leukaemia
     Dosage: 75 MG/M2, CYCLIC (DAYS 1-4)
     Route: 048
     Dates: start: 20190112

REACTIONS (3)
  - Neutropenic colitis [Recovering/Resolving]
  - Haematochezia [Recovering/Resolving]
  - Epistaxis [Recovering/Resolving]

NARRATIVE: CASE EVENT DATE: 20190101
